FAERS Safety Report 5256665-8 (Version None)
Quarter: 2007Q1

REPORT INFORMATION
  Report Type: 
  Country: None (occurrence: None)
  Receive Date: 20070306
  Receipt Date: 20070227
  Transmission Date: 20070707
  Serious: Yes (Hospitalization)
  Sender: FDA-Public Use
  Company Number: US-ELI_LILLY_AND_COMPANY-US200609005214

PATIENT
  Age: 74 Year
  Sex: Male

DRUGS (10)
  1. HUMALOG MIX 75/25 [Suspect]
     Indication: DIABETES MELLITUS
     Dosage: UNK, UNKNOWN
     Dates: start: 20010101
  2. COREG [Concomitant]
     Indication: CARDIAC FAILURE CONGESTIVE
     Dosage: UNK, UNKNOWN
  3. DIGITEK [Concomitant]
     Indication: CARDIAC FAILURE CONGESTIVE
     Dosage: UNK, UNKNOWN
  4. FUROSEMIDE [Concomitant]
     Indication: CARDIAC FAILURE CONGESTIVE
     Dosage: UNK, UNKNOWN
  5. WARFARIN SODIUM [Concomitant]
     Indication: CARDIAC FAILURE CONGESTIVE
     Dosage: UNK, UNKNOWN
  6. ZETIA [Concomitant]
     Indication: BLOOD CHOLESTEROL
     Dosage: UNK, UNKNOWN
  7. AVANDIA [Concomitant]
     Indication: DIABETES MELLITUS
     Dosage: UNK, UNKNOWN
  8. LISINOPRIL [Concomitant]
     Indication: CARDIAC FAILURE CONGESTIVE
     Dosage: UNK, UNKNOWN
  9. LIBRAX [Concomitant]
     Indication: ABDOMINAL PAIN
     Dosage: UNK, UNKNOWN
  10. HUMAN INSULIN (RDNA ORIGIN) [Suspect]
     Indication: DIABETES MELLITUS
     Dosage: UNK, UNKNOWN

REACTIONS (2)
  - CARDIAC FAILURE CONGESTIVE [None]
  - DIZZINESS [None]
